FAERS Safety Report 7301024-7 (Version None)
Quarter: 2011Q1

REPORT INFORMATION
  Report Type: 
  Country: None (occurrence: None)
  Receive Date: 20110218
  Receipt Date: 20110210
  Transmission Date: 20110831
  Serious: Yes (Death)
  Sender: FDA-Public Use
  Company Number: JP-SANOFI-AVENTIS-2011SA007834

PATIENT
  Age: 70 Year
  Sex: Male

DRUGS (7)
  1. DEPAS [Concomitant]
     Route: 048
  2. KALLIDINOGENASE [Concomitant]
     Route: 048
  3. ARICEPT [Concomitant]
     Route: 048
  4. BROTIZOLAM [Concomitant]
     Route: 048
  5. MYSLEE [Suspect]
     Route: 048
  6. CEROCRAL [Concomitant]
     Route: 048
  7. NICERGOLINE [Concomitant]
     Route: 048

REACTIONS (1)
  - RESPIRATORY DEPRESSION [None]
